FAERS Safety Report 15393168 (Version 3)
Quarter: 2018Q4

REPORT INFORMATION
  Report Type: Report from Study
  Country: NO (occurrence: NO)
  Receive Date: 20180917
  Receipt Date: 20181115
  Transmission Date: 20190204
  Serious: Yes (Hospitalization)
  Sender: FDA-Public Use
  Company Number: NO-TAKEDA-2018TUS027232

PATIENT
  Sex: Male

DRUGS (3)
  1. SELEXID                            /00445301/ [Concomitant]
     Active Substance: PIVMECILLINAM HYDROCHLORIDE
     Dosage: 400 MG, UNK
  2. USTEKINUMAB [Concomitant]
     Active Substance: USTEKINUMAB
     Dosage: UNK
     Dates: start: 20180712
  3. VEDOLIZUMAB [Suspect]
     Active Substance: VEDOLIZUMAB
     Indication: CROHN^S DISEASE
     Dosage: UNK
     Route: 042
     Dates: start: 20170718, end: 20180529

REACTIONS (2)
  - Pyelonephritis [Recovered/Resolved]
  - Crohn^s disease [Recovered/Resolved]

NARRATIVE: CASE EVENT DATE: 20171122
